FAERS Safety Report 8726360 (Version 2)
Quarter: 2013Q1

REPORT INFORMATION
  Report Type: Spontaneous
  Country: BR (occurrence: BR)
  Receive Date: 20120816
  Receipt Date: 20130318
  Transmission Date: 20140127
  Serious: Yes (Hospitalization)
  Sender: FDA-Public Use
  Company Number: PHHY2012BR070508

PATIENT
  Sex: Female

DRUGS (1)
  1. DIOVAN HCT [Suspect]
     Indication: HYPERTENSION
     Dosage: 1 DF, (320 MG VALS/ 12,5 MG HYDRO) QD

REACTIONS (2)
  - Meniscus injury [Recovered/Resolved]
  - Pain in extremity [Recovered/Resolved]
